FAERS Safety Report 16358568 (Version 1)
Quarter: 2019Q2

REPORT INFORMATION
  Report Type: Spontaneous
  Country: US (occurrence: US)
  Receive Date: 20190418
  Receipt Date: 20190418
  Transmission Date: 20190711
  Serious: Yes (Life-Threatening, Hospitalization)
  Sender: FDA-Public Use
  Company Number: None

PATIENT
  Age: 63 Year
  Sex: Female
  Weight: 82.55 kg

DRUGS (19)
  1. NORCO [Concomitant]
     Active Substance: ACETAMINOPHEN\HYDROCODONE BITARTRATE
  2. TOPIMATE [Concomitant]
     Active Substance: TOPIRAMATE
  3. CARDIZEM CD [Concomitant]
     Active Substance: DILTIAZEM HYDROCHLORIDE
  4. COUMADIN [Suspect]
     Active Substance: WARFARIN SODIUM
     Indication: PRODUCT USED FOR UNKNOWN INDICATION
     Route: 048
  5. DOFETILIDE. [Concomitant]
     Active Substance: DOFETILIDE
  6. COUMADIN [Suspect]
     Active Substance: WARFARIN SODIUM
     Indication: DEEP VEIN THROMBOSIS
     Route: 048
  7. CYMBALTA [Concomitant]
     Active Substance: DULOXETINE HYDROCHLORIDE
  8. COUMADIN [Suspect]
     Active Substance: WARFARIN SODIUM
     Indication: ANTIPHOSPHOLIPID SYNDROME
     Route: 048
  9. METHOTREXATE SODIUM. [Concomitant]
     Active Substance: METHOTREXATE SODIUM
  10. PRESERVISION LUTEIN [Concomitant]
     Active Substance: MINERALS\VITAMINS
  11. PREDNISONE. [Concomitant]
     Active Substance: PREDNISONE
  12. EXCEDRIN MIGRAINE [Concomitant]
     Active Substance: ACETAMINOPHEN\ASPIRIN\CAFFEINE
  13. FISH OIL CONCENTRATE [Concomitant]
     Active Substance: FISH OIL
  14. MAGNESIUM GLYCINATE [Concomitant]
     Active Substance: MAGNESIUM GLYCINATE
  15. OMEPRAZOLE. [Concomitant]
     Active Substance: OMEPRAZOLE
  16. AMITRIPTYLINE [Concomitant]
     Active Substance: AMITRIPTYLINE
  17. COUMADIN [Suspect]
     Active Substance: WARFARIN SODIUM
     Indication: CEREBROVASCULAR ACCIDENT
     Route: 048
  18. ATORVASTIN [Concomitant]
     Active Substance: ATORVASTATIN
  19. ESTRADIOL. [Concomitant]
     Active Substance: ESTRADIOL

REACTIONS (11)
  - Procedural shock [None]
  - Urinary tract infection [None]
  - Pneumonia klebsiella [None]
  - Vaginal haemorrhage [None]
  - Haemoglobin decreased [None]
  - Haematocrit decreased [None]
  - Post procedural haemorrhage [None]
  - Packed red blood cell transfusion [None]
  - Adrenal insufficiency [None]
  - Hypotension [None]
  - Culture urine positive [None]
